FAERS Safety Report 17528845 (Version 3)
Quarter: 2020Q3

REPORT INFORMATION
  Report Type: Report from Study
  Country: None (occurrence: US)
  Receive Date: 20200312
  Receipt Date: 20200730
  Transmission Date: 20201102
  Serious: Yes (Hospitalization, Other)
  Sender: FDA-Public Use
  Company Number: US-ABBVIE-20K-163-3311584-00

PATIENT
  Sex: Male

DRUGS (1)
  1. HUMIRA [Suspect]
     Active Substance: ADALIMUMAB
     Indication: COLITIS ULCERATIVE
     Dosage: CITRATE FREE
     Route: 058

REACTIONS (12)
  - Blood glucose increased [Unknown]
  - Blood pressure decreased [Recovering/Resolving]
  - Loss of consciousness [Unknown]
  - Dehydration [Recovering/Resolving]
  - Foot fracture [Recovering/Resolving]
  - Cerebrovascular accident [Unknown]
  - Balance disorder [Not Recovered/Not Resolved]
  - Nausea [Unknown]
  - Malaise [Unknown]
  - Renal injury [Recovering/Resolving]
  - Diabetes mellitus [Unknown]
  - Foot fracture [Unknown]

NARRATIVE: CASE EVENT DATE: 2020
